FAERS Safety Report 6146561-6 (Version None)
Quarter: 2009Q2

REPORT INFORMATION
  Report Type: 
  Country: None (occurrence: None)
  Receive Date: 20090407
  Receipt Date: 20090331
  Transmission Date: 20091009
  Serious: Yes (Hospitalization)
  Sender: FDA-Public Use
  Company Number: JP-MERCK-0903USA02164

PATIENT
  Age: 68 Year
  Sex: Female
  Weight: 81 kg

DRUGS (11)
  1. PEPCID RPD [Suspect]
     Route: 048
     Dates: start: 20090129, end: 20090219
  2. FERROMIA [Concomitant]
     Route: 065
     Dates: start: 20090129, end: 20090225
  3. ARIXTRA [Concomitant]
     Route: 065
     Dates: start: 20090129, end: 20090207
  4. VOLTAREN [Concomitant]
     Route: 065
     Dates: start: 20090128
  5. RASENAZOLIN [Concomitant]
     Route: 051
     Dates: start: 20090128, end: 20090131
  6. SODIUM LACTATE [Concomitant]
     Route: 065
     Dates: start: 20090128, end: 20090128
  7. ATARAX [Concomitant]
     Route: 065
     Dates: start: 20090128, end: 20090128
  8. PREDOPA [Concomitant]
     Route: 065
     Dates: start: 20090128, end: 20090128
  9. SOLDEM 3A [Concomitant]
     Route: 065
     Dates: start: 20090129, end: 20090129
  10. AMICALIQ [Concomitant]
     Route: 065
     Dates: start: 20090130, end: 20090130
  11. PENTAZOCINE LACTATE [Concomitant]
     Route: 065
     Dates: start: 20090128, end: 20090128

REACTIONS (1)
  - DISSEMINATED INTRAVASCULAR COAGULATION [None]
